FAERS Safety Report 24301140 (Version 1)
Quarter: 2024Q3

REPORT INFORMATION
  Report Type: Spontaneous
  Country: DE (occurrence: DE)
  Receive Date: 20240910
  Receipt Date: 20240910
  Transmission Date: 20241016
  Serious: Yes (Death, Life-Threatening, Disabling, Congenital Anomaly, Other)
  Sender: UCB
  Company Number: None

PATIENT

DRUGS (6)
  1. LEVETIRACETAM [Suspect]
     Active Substance: LEVETIRACETAM
     Indication: Epilepsy
     Dosage: 1000 MILLIGRAM, 2X/DAY (BID)
     Route: 064
     Dates: start: 202305, end: 20230914
  2. CITALOPRAM [Suspect]
     Active Substance: CITALOPRAM\CITALOPRAM HYDROBROMIDE
     Indication: Depression
     Dosage: 20 MILLIGRAM PER DAY
     Route: 064
     Dates: start: 202305, end: 20230914
  3. MIFEPRISTONE [Concomitant]
     Active Substance: MIFEPRISTONE
     Indication: Abortion induced
     Dosage: 600 MILLIGRAM PER DAY
     Route: 064
     Dates: start: 20230912, end: 20230912
  4. MISOPROSTOL [Concomitant]
     Active Substance: MISOPROSTOL
     Indication: Abortion induced
     Dosage: UNK
     Route: 064
     Dates: start: 20230914, end: 20230914
  5. HEPARIN [Concomitant]
     Active Substance: HEPARIN SODIUM
     Indication: Coagulopathy
     Dosage: UNK
     Route: 064
  6. FOLIO FORTE [CYANOCOBALAMIN;FOLIC ACID;POTASSIUM IODIDE] [Concomitant]
     Indication: Nutritional supplementation
     Dosage: 0.8 MILLIGRAM PER DAY
     Dates: start: 202305, end: 2023

REACTIONS (6)
  - Spina bifida [Fatal]
  - Arnold-Chiari malformation [Fatal]
  - Meningomyelocele [Fatal]
  - Foot deformity [Fatal]
  - Maternal exposure before pregnancy [Unknown]
  - Maternal exposure during pregnancy [Unknown]

NARRATIVE: CASE EVENT DATE: 20230101
